FAERS Safety Report 15073439 (Version 4)
Quarter: 2020Q2

REPORT INFORMATION
  Report Type: Spontaneous
  Country: US (occurrence: US)
  Receive Date: 20180627
  Receipt Date: 20200504
  Transmission Date: 20200713
  Serious: No
  Sender: FDA-Public Use
  Company Number: US-PFIZER INC-2018258635

PATIENT
  Age: 13 Year
  Sex: Male

DRUGS (1)
  1. GENOTROPIN [Suspect]
     Active Substance: SOMATROPIN
     Dosage: 1.6 MG, DAILY (7 DAYS PER WEEK)
     Dates: start: 201704

REACTIONS (4)
  - Food intolerance [Unknown]
  - Therapeutic product effect incomplete [Unknown]
  - Migraine [Unknown]
  - Nausea [Unknown]
